FAERS Safety Report 21065896 (Version 3)
Quarter: 2022Q3

REPORT INFORMATION
  Report Type: Spontaneous
  Country: US (occurrence: US)
  Receive Date: 20220711
  Receipt Date: 20220901
  Transmission Date: 20221026
  Serious: No
  Sender: FDA-Public Use
  Company Number: US-PFIZER INC-202200939080

PATIENT
  Age: 48 Year
  Sex: Female
  Weight: 54.43 kg

DRUGS (4)
  1. PAXLOVID [Suspect]
     Active Substance: NIRMATRELVIR\RITONAVIR
     Indication: COVID-19 treatment
     Dosage: [PF-07321332 300 MG]/[RITONAVIR 100 MG]; 2X/DAY
     Route: 048
     Dates: start: 20220706
  2. GABAPENTIN [Concomitant]
     Active Substance: GABAPENTIN
     Dosage: 600MG IN THE MORNING, 900MG IN THE AFTERNOON, AND 600MG AT NIGHT
  3. PRILOSEC [Concomitant]
     Active Substance: OMEPRAZOLE MAGNESIUM
     Indication: Gastric disorder
     Dosage: UNK, 2X/DAY
  4. NEURONTIN [Concomitant]
     Active Substance: GABAPENTIN
     Dosage: UNK

REACTIONS (12)
  - Dysgeusia [Recovered/Resolved]
  - Gastrointestinal sounds abnormal [Unknown]
  - Flatulence [Unknown]
  - Feeling jittery [Unknown]
  - Insomnia [Unknown]
  - Nausea [Not Recovered/Not Resolved]
  - Diarrhoea [Recovered/Resolved]
  - Pallor [Unknown]
  - Illness [Unknown]
  - Feeling abnormal [Unknown]
  - Headache [Unknown]
  - Parosmia [Unknown]

NARRATIVE: CASE EVENT DATE: 20220706
